FAERS Safety Report 6806434-X (Version None)
Quarter: 2010Q2

REPORT INFORMATION
  Report Type: 
  Country: None (occurrence: None)
  Receive Date: 20100629
  Receipt Date: 20080214
  Transmission Date: 20101027
  Serious: No
  Sender: FDA-Public Use
  Company Number: US-PFIZER INC-2008014358

PATIENT
  Sex: Female

DRUGS (1)
  1. SPIRONOLACTONE [Suspect]
     Indication: BLOOD ALDOSTERONE INCREASED
     Dates: start: 20070801

REACTIONS (2)
  - MENSTRUATION IRREGULAR [None]
  - THYROID FUNCTION TEST ABNORMAL [None]
